FAERS Safety Report 18101534 (Version 1)
Quarter: 2020Q3

REPORT INFORMATION
  Report Type: Spontaneous
  Country: US (occurrence: US)
  Receive Date: 20200801
  Receipt Date: 20200801
  Transmission Date: 20201103
  Serious: No
  Sender: FDA-Public Use
  Company Number: US-TAKEDA-2020TUS033065

PATIENT
  Sex: Female
  Weight: 44 kg

DRUGS (2)
  1. ALUNBRIG [Suspect]
     Active Substance: BRIGATINIB
     Indication: LUNG CARCINOMA CELL TYPE UNSPECIFIED STAGE IV
     Dosage: 180 MILLIGRAM, QD
     Route: 065
  2. ALUNBRIG [Suspect]
     Active Substance: BRIGATINIB
     Indication: CENTRAL NERVOUS SYSTEM LESION

REACTIONS (4)
  - Fatigue [Unknown]
  - Somnolence [Unknown]
  - Product dose omission issue [Unknown]
  - Off label use [Unknown]
